FAERS Safety Report 17095367 (Version 1)
Quarter: 2019Q4

REPORT INFORMATION
  Report Type: Spontaneous
  Country: US (occurrence: US)
  Receive Date: 20191104
  Receipt Date: 20191104
  Transmission Date: 20200122
  Serious: Yes (Death)
  Sender: FDA-Public Use
  Company Number: None

PATIENT
  Sex: Male

DRUGS (6)
  1. SIMVASTATIN. [Concomitant]
     Active Substance: SIMVASTATIN
  2. ESBRIET [Suspect]
     Active Substance: PIRFENIDONE
     Indication: HYPERTENSION
     Route: 048
     Dates: start: 20181005, end: 20191004
  3. LOSARTAN/HCT [Concomitant]
     Active Substance: HYDROCHLOROTHIAZIDE\LOSARTAN POTASSIUM
  4. ALPRAZOLAM. [Concomitant]
     Active Substance: ALPRAZOLAM
  5. GLIPIZIDE. [Concomitant]
     Active Substance: GLIPIZIDE
  6. NORCO [Concomitant]
     Active Substance: ACETAMINOPHEN\HYDROCODONE BITARTRATE

REACTIONS (1)
  - Death [None]
